FAERS Safety Report 15587385 (Version 2)
Quarter: 2018Q4

REPORT INFORMATION
  Report Type: Spontaneous
  Country: IT (occurrence: IT)
  Receive Date: 20181105
  Receipt Date: 20181121
  Transmission Date: 20190205
  Serious: Yes (Hospitalization)
  Sender: FDA-Public Use
  Company Number: IT-JNJFOC-20181045584

PATIENT
  Age: 88 Year
  Sex: Female

DRUGS (3)
  1. HALDOL [Suspect]
     Active Substance: HALOPERIDOL
     Indication: AGITATION
     Route: 048
  2. TALOFEN [Suspect]
     Active Substance: PROMAZINE HYDROCHLORIDE
     Indication: AGITATION
     Route: 048
     Dates: end: 20181023
  3. QUETIAPINE. [Suspect]
     Active Substance: QUETIAPINE
     Indication: SENILE DEMENTIA
     Route: 048

REACTIONS (4)
  - Off label use [Unknown]
  - Drug interaction [Unknown]
  - Sopor [Recovered/Resolved]
  - Inappropriate schedule of product administration [Unknown]

NARRATIVE: CASE EVENT DATE: 20181023
